FAERS Safety Report 4747661-5 (Version None)
Quarter: 2005Q3

REPORT INFORMATION
  Report Type: 
  Country: None (occurrence: None)
  Receive Date: 20050818
  Receipt Date: 20050510
  Transmission Date: 20060218
  Serious: Yes (Other)
  Sender: FDA-Public Use
  Company Number: US-BRISTOL-MYERS SQUIBB COMPANY-12963005

PATIENT
  Sex: Male

DRUGS (3)
  1. TEQUIN [Suspect]
     Route: 048
  2. TEQUIN [Suspect]
     Route: 042
  3. FLAGYL [Concomitant]

REACTIONS (7)
  - DIZZINESS [None]
  - HYPERACUSIS [None]
  - HYPERTENSION [None]
  - PALPITATIONS [None]
  - PERSONALITY CHANGE [None]
  - TACHYCARDIA [None]
  - VISION BLURRED [None]
